FAERS Safety Report 21301539 (Version 1)
Quarter: 2022Q3

REPORT INFORMATION
  Report Type: Spontaneous
  Country: US (occurrence: None)
  Receive Date: 20220906
  Receipt Date: 20220906
  Transmission Date: 20221027
  Serious: Yes (Other)
  Sender: FDA-Public Use
  Company Number: None

PATIENT
  Age: 54 Year
  Sex: Male
  Weight: 101.2 kg

DRUGS (1)
  1. SEMGLEE (INSULIN GLARGINE) [Suspect]
     Active Substance: INSULIN GLARGINE
     Indication: Type 1 diabetes mellitus
     Dosage: 54 UNITS DAILY SUBCUTANEOUS?
     Route: 058
     Dates: start: 20220809, end: 20220809

REACTIONS (3)
  - Injection site pruritus [None]
  - Injection site irritation [None]
  - Injection site erythema [None]

NARRATIVE: CASE EVENT DATE: 20220809
